FAERS Safety Report 17436125 (Version 1)
Quarter: 2020Q1

REPORT INFORMATION
  Report Type: Report from Study
  Country: US (occurrence: US)
  Receive Date: 20200219
  Receipt Date: 20200219
  Transmission Date: 20200409
  Serious: Yes (Other)
  Sender: FDA-Public Use
  Company Number: US-GILEAD-2020-0451451

PATIENT
  Sex: Female

DRUGS (1)
  1. SOFOSBUVIR W/VELPATASVIR [Suspect]
     Active Substance: SOFOSBUVIR\VELPATASVIR
     Indication: HEPATITIS C
     Dosage: 1 DOSAGE FORM (400/100 MG)
     Route: 065
     Dates: start: 20200131

REACTIONS (4)
  - Loss of consciousness [Recovered/Resolved]
  - Hypertension [Unknown]
  - Hot flush [Unknown]
  - Pyrexia [Unknown]
